FAERS Safety Report 7249656-9 (Version None)
Quarter: 2011Q1

REPORT INFORMATION
  Report Type: 
  Country: None (occurrence: None)
  Receive Date: 20110128
  Receipt Date: 20110117
  Transmission Date: 20110831
  Serious: Yes (Hospitalization)
  Sender: FDA-Public Use
  Company Number: IT-SANOFI-AVENTIS-2011SA003198

PATIENT
  Age: 80 Year
  Sex: Male

DRUGS (5)
  1. ORGANIC NITRATES [Concomitant]
  2. ANGIOTENSIN II ANTAGONISTS [Concomitant]
  3. BETA BLOCKING AGENTS [Concomitant]
  4. MULTAQ [Suspect]
     Route: 065
  5. COUMADIN [Concomitant]

REACTIONS (2)
  - HEPATIC FAILURE [None]
  - ASCITES [None]
